FAERS Safety Report 4682605-6 (Version None)
Quarter: 2005Q2

REPORT INFORMATION
  Report Type: 
  Country: None (occurrence: None)
  Receive Date: 20050606
  Receipt Date: 20040818
  Transmission Date: 20051028
  Serious: Yes (Hospitalization)
  Sender: FDA-Public Use
  Company Number: JP-BRISTOL-MYERS SQUIBB COMPANY-12683793

PATIENT
  Age: 31 Year
  Sex: Male

DRUGS (10)
  1. EFAVIRENZ CAPS [Suspect]
     Indication: HIV INFECTION
     Route: 048
     Dates: start: 19990823
  2. STAVUDINE [Suspect]
     Indication: HIV INFECTION
     Dosage: CHANGED TO 40 MG TWICE DAILY ON 03-FEB-2000
     Route: 048
     Dates: start: 19990823
  3. INDINAVIR SULFATE [Suspect]
     Indication: HIV INFECTION
     Route: 048
     Dates: start: 20001216, end: 20010314
  4. LAMIVUDINE [Suspect]
     Indication: HIV INFECTION
     Route: 048
     Dates: start: 19990823
  5. PYRIDOXAL PHOSPHATE [Suspect]
     Indication: LYMPHADENOPATHY
     Route: 048
     Dates: end: 20001103
  6. KLARICID [Suspect]
     Indication: MYCOBACTERIAL INFECTION
     Route: 048
     Dates: start: 19990715, end: 20020612
  7. DENOSINE [Suspect]
     Indication: CYTOMEGALOVIRUS OESOPHAGITIS
     Route: 048
     Dates: start: 19991021, end: 20000908
  8. RITONAVIR [Concomitant]
     Dates: start: 20001216, end: 20010314
  9. SULFAMETHOXAZOLE + TRIMETHOPRIM [Concomitant]
     Dates: start: 19990715, end: 20020612
  10. TEPRENONE [Concomitant]
     Dates: end: 20001205

REACTIONS (4)
  - CYTOMEGALOVIRUS OESOPHAGITIS [None]
  - HYPERURICAEMIA [None]
  - LYMPHADENOPATHY [None]
  - PNEUMONIA CYTOMEGALOVIRAL [None]
